FAERS Safety Report 14108128 (Version 1)
Quarter: 2017Q4

REPORT INFORMATION
  Report Type: Spontaneous
  Country: US (occurrence: US)
  Receive Date: 20171019
  Receipt Date: 20171019
  Transmission Date: 20180321
  Serious: Yes (Death, Hospitalization, Other)
  Sender: FDA-Public Use
  Company Number: US-UPSHER-SMITH LABORATORIES, INC.-2017USL00254

PATIENT
  Sex: Male

DRUGS (2)
  1. AMIODARONE HYDROCHLORIDE (TEVA) [Suspect]
     Active Substance: AMIODARONE HYDROCHLORIDE
     Indication: ATRIAL FIBRILLATION
     Dosage: UNK
     Route: 048
     Dates: start: 201412
  2. AMIODARONE HYDROCHLORIDE. [Suspect]
     Active Substance: AMIODARONE HYDROCHLORIDE
     Indication: ATRIAL FIBRILLATION
     Dosage: UNK
     Route: 048
     Dates: start: 201412

REACTIONS (17)
  - Visual impairment [Unknown]
  - Haemorrhage [Unknown]
  - Infection [Unknown]
  - Peripheral swelling [Unknown]
  - Off label use [Unknown]
  - Respiratory failure [Fatal]
  - Anaemia [Unknown]
  - Anxiety [Unknown]
  - Pulmonary fibrosis [Unknown]
  - Atrial fibrillation [Unknown]
  - Dyspnoea [Unknown]
  - Pneumonia [Fatal]
  - Fatigue [Unknown]
  - Respiratory distress [Unknown]
  - Heart rate increased [Unknown]
  - Cardiac failure congestive [Unknown]
  - Cough [Unknown]

NARRATIVE: CASE EVENT DATE: 201412
